FAERS Safety Report 5729776-8 (Version None)
Quarter: 2008Q2

REPORT INFORMATION
  Report Type: 
  Country: None (occurrence: None)
  Receive Date: 20080501
  Receipt Date: 20080416
  Transmission Date: 20081010
  Serious: Yes (Other)
  Sender: FDA-Public Use
  Company Number: 2008S1006407

PATIENT
  Age: 84 Year
  Sex: Female

DRUGS (5)
  1. FINASTERIDE [Suspect]
     Indication: BENIGN PROSTATIC HYPERPLASIA
     Dosage: 5 MG;DAILY;ORAL
     Route: 048
     Dates: start: 20080215, end: 20080327
  2. ASPIRIN [Concomitant]
  3. FELODIPINE [Concomitant]
  4. FOSINOPRIL SODIUM [Concomitant]
  5. KETOPROFEN [Concomitant]

REACTIONS (1)
  - TREMOR [None]
